FAERS Safety Report 5631637-X (Version None)
Quarter: 2008Q1

REPORT INFORMATION
  Report Type: 
  Country: None (occurrence: None)
  Receive Date: 20080213
  Receipt Date: 20080204
  Transmission Date: 20080703
  Serious: Yes (Death)
  Sender: FDA-Public Use
  Company Number: 2008-00939

PATIENT
  Sex: Male

DRUGS (3)
  1. GABAPENTIN [Suspect]
  2. HYDROCODONE BITATRATE/ACETAMINOPHEN UNKNOWN STRENGTH (WATSON)(HYDROCOD [Suspect]
  3. VENLAFAXINE HCL [Suspect]

REACTIONS (1)
  - DEATH [None]
